FAERS Safety Report 8730526 (Version 2)
Quarter: 2013Q4

REPORT INFORMATION
  Report Type: Spontaneous
  Country: US (occurrence: US)
  Receive Date: 20120817
  Receipt Date: 20131031
  Transmission Date: 20140711
  Serious: No
  Sender: FDA-Public Use
  Company Number: US-009507513-2012SP032516

PATIENT
  Sex: Male
  Weight: 81.65 kg

DRUGS (2)
  1. CLARITIN [Suspect]
     Indication: RHINORRHOEA
     Dosage: 10 MG, QD
     Route: 048
     Dates: start: 201204, end: 201205
  2. CLARITIN [Suspect]
     Indication: SNEEZING

REACTIONS (1)
  - No therapeutic response [Unknown]
